FAERS Safety Report 20203812 (Version 2)
Quarter: 2022Q1

REPORT INFORMATION
  Report Type: Spontaneous
  Country: JP (occurrence: JP)
  Receive Date: 20211219
  Receipt Date: 20220211
  Transmission Date: 20220423
  Serious: Yes (Other)
  Sender: FDA-Public Use
  Company Number: JP-BEH-2021139311

PATIENT
  Age: 1 Year
  Sex: Male

DRUGS (3)
  1. HUMAN IMMUNOGLOBULIN G [Suspect]
     Active Substance: HUMAN IMMUNOGLOBULIN G
     Indication: Nephrotic syndrome
     Dosage: 600 MILLIGRAM/KILOGRAM
     Route: 042
  2. HUMAN IMMUNOGLOBULIN G [Suspect]
     Active Substance: HUMAN IMMUNOGLOBULIN G
     Indication: Blood immunoglobulin G decreased
     Dosage: UNK
     Route: 042
  3. PREDNISOLONE [Suspect]
     Active Substance: PREDNISOLONE

REACTIONS (6)
  - Platelet count decreased [Recovered/Resolved]
  - Anaemia [Recovered/Resolved]
  - Haemorrhage subcutaneous [Recovered/Resolved]
  - Gastrointestinal haemorrhage [Unknown]
  - No adverse event [Unknown]
  - Off label use [Unknown]
